FAERS Safety Report 13384863 (Version 1)
Quarter: 2017Q1

REPORT INFORMATION
  Report Type: Spontaneous
  Country: US (occurrence: US)
  Receive Date: 20170330
  Receipt Date: 20170330
  Transmission Date: 20170429
  Serious: Yes (Hospitalization)
  Sender: FDA-Public Use
  Company Number: None

PATIENT
  Age: 66 Year
  Sex: Female
  Weight: 57.1 kg

DRUGS (2)
  1. RITUXIMAB (MOAB C2B8 ANTI CD20, CHIMERIC) [Suspect]
     Active Substance: RITUXIMAB
     Dates: end: 20160121
  2. LENALIDOMIDE (CC-5013) [Suspect]
     Active Substance: LENALIDOMIDE
     Dates: end: 20160210

REACTIONS (11)
  - Neck pain [None]
  - Streptococcus test positive [None]
  - Febrile neutropenia [None]
  - Enterovirus test positive [None]
  - Dysuria [None]
  - Productive cough [None]
  - Human rhinovirus test positive [None]
  - Leukopenia [None]
  - Lung infiltration [None]
  - Fatigue [None]
  - Sinusitis [None]

NARRATIVE: CASE EVENT DATE: 20160211
